FAERS Safety Report 8207172-1 (Version None)
Quarter: 2012Q1

REPORT INFORMATION
  Report Type: 
  Country: None (occurrence: None)
  Receive Date: 20120314
  Receipt Date: 20120311
  Transmission Date: 20120608
  Serious: No
  Sender: FDA-Public Use
  Company Number: US-PFIZER INC-2012064067

PATIENT
  Sex: Female
  Weight: 9.524 kg

DRUGS (1)
  1. PEDIATRIC ADVIL [Suspect]
     Indication: TEETHING
     Dosage: UNK, 2X/DAY
     Route: 048
     Dates: start: 20120309, end: 20120310

REACTIONS (3)
  - HYPERSENSITIVITY [None]
  - RASH [None]
  - URTICARIA [None]
